FAERS Safety Report 8390530-2 (Version None)
Quarter: 2012Q2

REPORT INFORMATION
  Report Type: 
  Country: None (occurrence: None)
  Receive Date: 20120529
  Receipt Date: 20120522
  Transmission Date: 20120825
  Serious: Yes (Other)
  Sender: FDA-Public Use
  Company Number: US-PFIZER INC-2012113070

PATIENT
  Sex: Male
  Weight: 77.098 kg

DRUGS (3)
  1. TOVIAZ [Suspect]
     Indication: HYPERTONIC BLADDER
     Dosage: 4 MG, 1X/DAY
     Dates: start: 20120101
  2. ALPHAGAN [Concomitant]
     Indication: GLAUCOMA
     Dosage: 0.15% UNK
  3. AZOPT [Concomitant]
     Indication: GLAUCOMA
     Dosage: 1% UNK

REACTIONS (4)
  - DYSPHAGIA [None]
  - THROAT TIGHTNESS [None]
  - DRY MOUTH [None]
  - HICCUPS [None]
